FAERS Safety Report 19062553 (Version 1)
Quarter: 2021Q1

REPORT INFORMATION
  Report Type: Spontaneous
  Country: US (occurrence: US)
  Receive Date: 20210326
  Receipt Date: 20210326
  Transmission Date: 20210420
  Serious: Yes (Other)
  Sender: FDA-Public Use
  Company Number: US-AIZANT-2021AIZANTLIT00026

PATIENT
  Age: 40 Year
  Sex: Female

DRUGS (5)
  1. MAGNESIUM [Suspect]
     Active Substance: MAGNESIUM
     Indication: DYSPNOEA
     Route: 042
  2. MEPOLIZUMAB [Concomitant]
     Active Substance: MEPOLIZUMAB
  3. ALBUTEROL. [Suspect]
     Active Substance: ALBUTEROL
     Indication: DYSPNOEA
     Route: 055
  4. SOLU?MEDROL [Suspect]
     Active Substance: METHYLPREDNISOLONE SODIUM SUCCINATE
     Indication: DYSPNOEA
     Route: 065
  5. IPRATROPIUM [Suspect]
     Active Substance: IPRATROPIUM
     Indication: DYSPNOEA
     Route: 055

REACTIONS (1)
  - Drug ineffective [Unknown]
